FAERS Safety Report 5059416-5 (Version None)
Quarter: 2006Q3

REPORT INFORMATION
  Report Type: 
  Country: None (occurrence: None)
  Receive Date: 20060724
  Receipt Date: 20020702
  Transmission Date: 20061208
  Serious: Yes (Death)
  Sender: FDA-Public Use
  Company Number: US-AMGEN-KDL015290

PATIENT
  Sex: Female
  Weight: 82.2 kg

DRUGS (1)
  1. PROCRIT [Suspect]
     Indication: ANAEMIA OF MALIGNANT DISEASE
     Route: 058
     Dates: start: 20020327

REACTIONS (3)
  - MALIGNANT NEOPLASM PROGRESSION [None]
  - MEDICATION TAMPERING [None]
  - THERAPEUTIC RESPONSE DECREASED [None]
